FAERS Safety Report 23972993 (Version 2)
Quarter: 2024Q2

REPORT INFORMATION
  Report Type: Report from Study
  Country: US (occurrence: US)
  Receive Date: 20240613
  Receipt Date: 20240616
  Transmission Date: 20240715
  Serious: Yes (Other)
  Sender: FDA-Public Use
  Company Number: US-JNJFOC-20240617534

PATIENT
  Age: 35 Year
  Sex: Female

DRUGS (2)
  1. SPRAVATO [Suspect]
     Active Substance: ESKETAMINE
     Indication: Depression
     Dosage: ^^56 MG, 4 TOTAL DOSES^^
     Dates: start: 20240402, end: 20240409
  2. SPRAVATO [Suspect]
     Active Substance: ESKETAMINE
     Dosage: ^^84 MG, 4 TOTAL DOSES^^
     Dates: start: 20240415, end: 20240425

REACTIONS (1)
  - Drug ineffective [Unknown]

NARRATIVE: CASE EVENT DATE: 20240401
